FAERS Safety Report 7587032-X (Version None)
Quarter: 2011Q3

REPORT INFORMATION
  Report Type: 
  Country: None (occurrence: None)
  Receive Date: 20110701
  Receipt Date: 20110622
  Transmission Date: 20111222
  Serious: Yes (Life-Threatening, Hospitalization, Other)
  Sender: FDA-Public Use
  Company Number: FR-JNJFOC-20110600967

PATIENT
  Age: 10 Year
  Sex: Female
  Weight: 29 kg

DRUGS (11)
  1. FORTIMEL [Concomitant]
  2. PREDNISONE [Concomitant]
     Indication: CROHN'S DISEASE
     Dates: start: 20110430
  3. REMICADE [Suspect]
     Route: 042
     Dates: start: 20110527, end: 20110527
  4. REMICADE [Suspect]
     Indication: CROHN'S DISEASE
     Route: 042
     Dates: start: 20110513
  5. POLARAMINE [Concomitant]
     Indication: PREMEDICATION
     Route: 042
  6. REMICADE [Suspect]
     Route: 042
     Dates: start: 20110527, end: 20110527
  7. REMICADE [Suspect]
     Indication: COLITIS
     Route: 042
     Dates: start: 20110513
  8. CALCIUM CARBONATE [Concomitant]
  9. FOLIC ACID [Concomitant]
  10. PHOSPHONEUROS [Concomitant]
  11. HYDROCORTISONE HEMISUCCINATE [Concomitant]
     Indication: PREMEDICATION
     Route: 042

REACTIONS (2)
  - INFUSION RELATED REACTION [None]
  - ANAPHYLACTIC SHOCK [None]
